FAERS Safety Report 4911783-6 (Version None)
Quarter: 2006Q1

REPORT INFORMATION
  Report Type: 
  Country: None (occurrence: None)
  Receive Date: 20060215
  Receipt Date: 20060208
  Transmission Date: 20060701
  Serious: Yes (Other)
  Sender: FDA-Public Use
  Company Number: US-SOLVAY-00206000475

PATIENT
  Sex: Female
  Weight: 60 kg

DRUGS (5)
  1. SYNTEST [Concomitant]
     Indication: HORMONE REPLACEMENT THERAPY
     Dosage: DAILY DOSE: 1 DOSAGE FORM
     Route: 048
     Dates: start: 20020101, end: 20060201
  2. PROMETRIUM [Suspect]
     Indication: HORMONE REPLACEMENT THERAPY
     Dosage: DAILY DOSE: 200 MILLIGRAM(S)
     Route: 048
     Dates: start: 20020101, end: 20051201
  3. PROMETRIUM [Suspect]
     Dosage: 200 MG 12 DAYS PER MONTH
     Route: 048
     Dates: start: 20051201, end: 20060201
  4. PROTONIX [Concomitant]
     Indication: GASTROOESOPHAGEAL REFLUX DISEASE
     Dosage: DAILY DOSE: 40 MILLIGRAM(S)
     Route: 048
     Dates: start: 20050101
  5. CALTRATE [Concomitant]
     Indication: ILL-DEFINED DISORDER
     Dosage: DAILY DOSE: 1 DOSAGE FORM
     Route: 048
     Dates: start: 20050101

REACTIONS (9)
  - ACNE [None]
  - BLOOD PRESSURE INCREASED [None]
  - CERVIX DISORDER [None]
  - CYST [None]
  - FLUID RETENTION [None]
  - HYPERHIDROSIS [None]
  - INTERVERTEBRAL DISCITIS [None]
  - SMEAR CERVIX ABNORMAL [None]
  - WEIGHT INCREASED [None]
